FAERS Safety Report 9775669 (Version 2)
Quarter: 2014Q1

REPORT INFORMATION
  Report Type: Spontaneous
  Country: JP (occurrence: JP)
  Receive Date: 20131220
  Receipt Date: 20140122
  Transmission Date: 20141002
  Serious: Yes (Other)
  Sender: FDA-Public Use
  Company Number: JP-PFIZER INC-2013363069

PATIENT
  Age: 41 Year
  Sex: Female

DRUGS (2)
  1. LYRICA [Suspect]
     Dosage: 50 MG, DAILY
     Route: 048
     Dates: start: 20131125, end: 20131205
  2. LYRICA [Suspect]
     Dosage: 75 MG, DAILY
     Route: 048
     Dates: start: 20131206

REACTIONS (1)
  - VIIth nerve paralysis [Unknown]
